FAERS Safety Report 10206044 (Version 3)
Quarter: 2015Q3

REPORT INFORMATION
  Report Type: Spontaneous
  Country: ES (occurrence: ES)
  Receive Date: 20140530
  Receipt Date: 20150823
  Transmission Date: 20151125
  Serious: Yes (Hospitalization, Other)
  Sender: FDA-Public Use
  Company Number: ES-AMGEN-ESPSP2014033762

PATIENT
  Age: 67 Year
  Sex: Female

DRUGS (4)
  1. HIDROSALURETIL [Concomitant]
     Active Substance: HYDROCHLOROTHIAZIDE
     Dosage: 1/2 IN THE MORNING
  2. NOLOTIL                            /00473101/ [Concomitant]
     Active Substance: METAMIZOLE
     Indication: PAIN
     Dosage: 1 TABLET,  Q8H
     Route: 065
  3. ACETAMINOPHEN. [Concomitant]
     Active Substance: ACETAMINOPHEN
     Dosage: 1 G, Q8H
     Route: 065
  4. PROLIA [Suspect]
     Active Substance: DENOSUMAB
     Indication: OSTEOPOROSIS
     Dosage: UNK
     Route: 065
     Dates: start: 20111126

REACTIONS (9)
  - Fall [Unknown]
  - Contusion [Unknown]
  - Dizziness [Recovered/Resolved]
  - Disability [Unknown]
  - Periprosthetic fracture [Unknown]
  - Brain injury [Unknown]
  - Hypotension [Unknown]
  - Pyrexia [Unknown]
  - Atypical femur fracture [Recovered/Resolved]

NARRATIVE: CASE EVENT DATE: 201311
